FAERS Safety Report 13854477 (Version 1)
Quarter: 2017Q3

REPORT INFORMATION
  Report Type: Spontaneous
  Country: US (occurrence: US)
  Receive Date: 20170810
  Receipt Date: 20170810
  Transmission Date: 20171127
  Serious: No
  Sender: FDA-Public Use
  Company Number: US-GLAXOSMITHKLINE-US2017123685

PATIENT
  Age: 80 Year
  Sex: Female

DRUGS (16)
  1. HYDROCHLOROTHIAZIDE. [Concomitant]
     Active Substance: HYDROCHLOROTHIAZIDE
  2. LIDODERM [Concomitant]
     Active Substance: LIDOCAINE
  3. ASPIRIN. [Concomitant]
     Active Substance: ASPIRIN
  4. TELMISARTAN. [Concomitant]
     Active Substance: TELMISARTAN
  5. ATORVASTATIN [Concomitant]
     Active Substance: ATORVASTATIN
  6. DILTIAZEM. [Concomitant]
     Active Substance: DILTIAZEM
  7. VITAMIN B12 [Concomitant]
     Active Substance: CYANOCOBALAMIN
  8. ESCITALOPRAM [Concomitant]
     Active Substance: ESCITALOPRAM OXALATE
  9. METOPROLOL. [Concomitant]
     Active Substance: METOPROLOL
  10. PROVENTIL [Concomitant]
     Active Substance: ALBUTEROL
  11. VITAMIN C [Concomitant]
     Active Substance: ASCORBIC ACID
  12. FOLIC ACID. [Concomitant]
     Active Substance: FOLIC ACID
  13. INCRUSE ELLIPTA [Suspect]
     Active Substance: UMECLIDINIUM BROMIDE
     Indication: CHRONIC OBSTRUCTIVE PULMONARY DISEASE
     Dosage: 1 PUFF(S), QD
     Route: 055
     Dates: start: 201703
  14. DOCUSATE [Concomitant]
     Active Substance: DOCUSATE
  15. THIAMINE. [Concomitant]
     Active Substance: THIAMINE
  16. NAPROSYN [Concomitant]
     Active Substance: NAPROXEN

REACTIONS (3)
  - Dyspnoea [Not Recovered/Not Resolved]
  - Tongue dry [Not Recovered/Not Resolved]
  - Hunger [Not Recovered/Not Resolved]

NARRATIVE: CASE EVENT DATE: 201703
